FAERS Safety Report 9842022 (Version 1)
Quarter: 2013Q4

REPORT INFORMATION
  Report Type: Spontaneous
  Country: US (occurrence: None)
  Receive Date: 20131219
  Receipt Date: 20131219
  Transmission Date: 20140711
  Serious: Yes (Hospitalization)
  Sender: FDA-Public Use
  Company Number: 163-20785-13011057

PATIENT
  Age: 47 Year
  Sex: Male

DRUGS (11)
  1. THALOMID (THALIDOMIDE) (100 MILLIGRAM, CAPSULES) [Suspect]
     Indication: PLASMA CELL MYELOMA
     Dosage: 100 MG, 28 IN 28 D, PO
     Route: 048
     Dates: start: 20121203, end: 20121225
  2. MONTELUKAST (MONTELUKAST) (UNKNOWN)? [Concomitant]
  3. ADVAIR (SERETIDE MITE) (UNKNOWN) [Concomitant]
  4. LYRICA (PREGABALIN) (UNKNOWN) [Concomitant]
  5. LISINOPRIL (LISINOPRIL) (UNKNOWN) [Concomitant]
  6. METOPROLOL (METOPROLOL) (UNKNOWN) [Concomitant]
  7. CARTIA (ACETYLSALICYLIC ACID) (UNKNOWN) [Concomitant]
  8. VELCADE (BORTEZOMIB) (UNKNOWN) [Concomitant]
  9. DEXAMETHASONE (DEXAMETHASONE) (UNKNOWN) [Concomitant]
  10. ZOMETA (ZOLEDRONIC ACID) (UNKNOWN) [Concomitant]
  11. KYPROLIS (ALL OTHER THERAPEUTIC PRODUCTS) (UNKNOWN)? [Concomitant]

REACTIONS (2)
  - Staphylococcal sepsis [None]
  - Catheter site infection [None]
